FAERS Safety Report 5705811-8 (Version None)
Quarter: 2008Q2

REPORT INFORMATION
  Report Type: 
  Country: None (occurrence: None)
  Receive Date: 20080415
  Receipt Date: 20080304
  Transmission Date: 20081010
  Serious: No
  Sender: FDA-Public Use
  Company Number: US-BAYER-200816058NA

PATIENT
  Age: 48 Year
  Sex: Male

DRUGS (1)
  1. MAGNEVIST [Suspect]
     Indication: DRUG USE FOR UNKNOWN INDICATION
     Route: 042
     Dates: start: 20080304, end: 20080304

REACTIONS (3)
  - BACK PAIN [None]
  - FEELING HOT [None]
  - NAUSEA [None]
